FAERS Safety Report 9754111 (Version 1)
Quarter: 2013Q4

REPORT INFORMATION
  Report Type: Spontaneous
  Country: US (occurrence: US)
  Receive Date: 20131213
  Receipt Date: 20131213
  Transmission Date: 20140711
  Serious: No
  Sender: FDA-Public Use
  Company Number: US-GLAXOSMITHKLINE-A1020200A

PATIENT
  Age: 48 Year
  Sex: Female

DRUGS (1)
  1. NICORETTE NICOTINE POLACRILEX MINT LOZENGE, 4MG [Suspect]
     Indication: EX-TOBACCO USER
     Dates: start: 20130415

REACTIONS (2)
  - Headache [Not Recovered/Not Resolved]
  - Expired drug administered [Unknown]
